FAERS Safety Report 16032314 (Version 1)
Quarter: 2019Q1

REPORT INFORMATION
  Report Type: Spontaneous
  Country: PT (occurrence: PT)
  Receive Date: 20190304
  Receipt Date: 20190304
  Transmission Date: 20190418
  Serious: Yes (Death, Other)
  Sender: FDA-Public Use
  Company Number: PT-009507513-1812PRT007236

PATIENT
  Age: 77 Year
  Sex: Female

DRUGS (1)
  1. KEYTRUDA [Suspect]
     Active Substance: PEMBROLIZUMAB
     Indication: GASTRIC CANCER
     Dosage: CYCLICAL
     Dates: start: 20181211

REACTIONS (3)
  - Malignant neoplasm progression [Fatal]
  - Eastern Cooperative Oncology Group performance status worsened [Unknown]
  - Off label use [Unknown]

NARRATIVE: CASE EVENT DATE: 20181211
